FAERS Safety Report 8084180-5 (Version None)
Quarter: 2012Q1

REPORT INFORMATION
  Report Type: 
  Country: None (occurrence: None)
  Receive Date: 20120128
  Receipt Date: 20110119
  Transmission Date: 20120608
  Serious: No
  Sender: FDA-Public Use
  Company Number: US-ABBOTT-11P-163-0699504-00

PATIENT
  Age: 63 Year
  Sex: Male

DRUGS (4)
  1. BLOOD PRESSURE PILL [Concomitant]
     Indication: BLOOD PRESSURE
  2. CHOLESTEROL PILL [Concomitant]
     Indication: BLOOD CHOLESTEROL
  3. ACID REFLUX PILL [Concomitant]
     Indication: GASTROOESOPHAGEAL REFLUX DISEASE
  4. HUMIRA [Suspect]
     Indication: RHEUMATOID ARTHRITIS
     Dates: start: 20100801

REACTIONS (2)
  - INJECTION SITE PAIN [None]
  - INJECTION SITE HAEMATOMA [None]
